FAERS Safety Report 8053851-9 (Version None)
Quarter: 2012Q1

REPORT INFORMATION
  Report Type: 
  Country: None (occurrence: None)
  Receive Date: 20120110
  Receipt Date: 20111229
  Transmission Date: 20120608
  Serious: Yes (Hospitalization)
  Sender: FDA-Public Use
  Company Number: 2011AP003099

PATIENT
  Age: 53 Year
  Sex: Female

DRUGS (8)
  1. TACROLIMUS [Suspect]
     Indication: RENAL TRANSPLANT
     Dosage: 1.5 MG;UNKNOWN;BID
  2. TACROLIMUS [Suspect]
     Indication: IMMUNOSUPPRESSION
     Dosage: 1.5 MG;UNKNOWN;BID
  3. PREDNISOLONE [Suspect]
     Indication: RENAL TRANSPLANT
  4. PREDNISOLONE [Suspect]
     Indication: IMMUNOSUPPRESSION
  5. RITONAVIR [Suspect]
     Indication: ANTIRETROVIRAL THERAPY
  6. MYCOPHENOLATE MOFETIL [Suspect]
     Indication: IMMUNOSUPPRESSION
  7. MYCOPHENOLATE MOFETIL [Suspect]
     Indication: RENAL TRANSPLANT
  8. ATAZANAVIR [Suspect]
     Indication: ANTIRETROVIRAL THERAPY

REACTIONS (9)
  - DRUG INTERACTION [None]
  - HAEMOGLOBIN DECREASED [None]
  - POST PROCEDURAL HAEMATOMA [None]
  - BLOOD BILIRUBIN INCREASED [None]
  - SOMNOLENCE [None]
  - AMNESIA [None]
  - RENAL IMPAIRMENT [None]
  - RENAL TUBULAR NECROSIS [None]
  - DRUG LEVEL ABOVE THERAPEUTIC [None]
